FAERS Safety Report 6622470-0 (Version None)
Quarter: 2010Q1

REPORT INFORMATION
  Report Type: 
  Country: None (occurrence: None)
  Receive Date: 20100310
  Receipt Date: 20100201
  Transmission Date: 20100710
  Serious: No
  Sender: FDA-Public Use
  Company Number: US-BIOGENIDEC-2010BI003441

PATIENT
  Sex: Female

DRUGS (3)
  1. AVONEX [Suspect]
     Indication: MULTIPLE SCLEROSIS
     Route: 030
     Dates: start: 20090601
  2. DARVOCET [Concomitant]
     Indication: BONE PAIN
     Route: 048
  3. MOTRIN [Concomitant]
     Indication: BONE PAIN
     Route: 048

REACTIONS (2)
  - ABASIA [None]
  - BONE PAIN [None]
